FAERS Safety Report 11339776 (Version 2)
Quarter: 2015Q3

REPORT INFORMATION
  Report Type: Spontaneous
  Country: JP (occurrence: JP)
  Receive Date: 20150805
  Receipt Date: 20150831
  Transmission Date: 20151125
  Serious: Yes (Hospitalization)
  Sender: FDA-Public Use
  Company Number: JP-ELI_LILLY_AND_COMPANY-JP201507010936

PATIENT
  Sex: Female
  Weight: 68.1 kg

DRUGS (14)
  1. RIVOTRIL [Suspect]
     Active Substance: CLONAZEPAM
     Indication: DEPRESSION
     Dosage: 1 MG, TID
     Route: 048
     Dates: end: 20150728
  2. REBAMIPIDE [Concomitant]
     Active Substance: REBAMIPIDE
     Dosage: 100 MG, TID
     Route: 048
     Dates: end: 20150728
  3. VEGETAMIN B [Suspect]
     Active Substance: CHLORPROMAZINE HYDROCHLORIDE\PHENOBARBITAL\PROMETHAZINE
     Indication: DEPRESSION
     Dosage: 1 DF, UNK
     Route: 048
     Dates: end: 20150728
  4. EURODIN                            /00401202/ [Suspect]
     Active Substance: DIHYDROERGOCRISTINE MESYLATE
     Indication: DEPRESSION
     Dosage: 2 MG, UNK
     Route: 048
     Dates: end: 20150728
  5. ROHYPNOL [Suspect]
     Active Substance: FLUNITRAZEPAM
     Indication: DEPRESSION
     Dosage: 1 MG, UNK
     Route: 048
     Dates: end: 20150728
  6. JZOLOFT [Suspect]
     Active Substance: SERTRALINE HYDROCHLORIDE
     Indication: DEPRESSION
     Dosage: 100 MG, EACH EVENING
     Route: 048
     Dates: end: 20150728
  7. LANSOPRAZOLE. [Concomitant]
     Active Substance: LANSOPRAZOLE
     Dosage: 15 MG, EACH MORNING
     Route: 048
     Dates: end: 20150728
  8. ZYPREXA [Suspect]
     Active Substance: OLANZAPINE
     Indication: DEPRESSION
     Dosage: 5 MG, QD
     Route: 048
     Dates: end: 20150728
  9. EPERISONE [Concomitant]
     Active Substance: EPERISONE
     Dosage: 50 MG, TID
     Route: 048
     Dates: end: 20150728
  10. LIMAS [Suspect]
     Active Substance: LITHIUM CARBONATE
     Indication: DEPRESSION
     Dosage: 200 MG, BID
     Route: 048
     Dates: end: 20150728
  11. SENNOSIDE                          /00571901/ [Concomitant]
     Active Substance: SENNOSIDES A AND B
     Dosage: 24 MG, EACH EVENING
     Route: 048
     Dates: end: 20150728
  12. CETILO [Concomitant]
     Dosage: 2 DF, TID
     Route: 048
     Dates: end: 20150728
  13. VEGETAMIN A [Suspect]
     Active Substance: CHLORPROMAZINE HYDROCHLORIDE\PHENOBARBITAL\PROMETHAZINE
     Indication: DEPRESSION
     Dosage: 1 DF, QD
     Route: 048
     Dates: end: 20150728
  14. LOXOPROFEN [Concomitant]
     Active Substance: LOXOPROFEN
     Dosage: 60 MG, TID
     Route: 048
     Dates: end: 20150728

REACTIONS (3)
  - Neuroleptic malignant syndrome [Recovered/Resolved]
  - Off label use [Recovered/Resolved]
  - Water intoxication [Recovered/Resolved]
